FAERS Safety Report 10041041 (Version 1)
Quarter: 2014Q1

REPORT INFORMATION
  Report Type: Spontaneous
  Country: FR (occurrence: FR)
  Receive Date: 20140327
  Receipt Date: 20140327
  Transmission Date: 20141002
  Serious: Yes (Other)
  Sender: FDA-Public Use
  Company Number: FR-PFIZER INC-2014083007

PATIENT
  Age: 18 Year
  Sex: Male

DRUGS (1)
  1. VFEND [Suspect]

REACTIONS (1)
  - Systemic lupus erythematosus [Recovered/Resolved]
